FAERS Safety Report 24728664 (Version 1)
Quarter: 2024Q4

REPORT INFORMATION
  Report Type: Spontaneous
  Country: US (occurrence: US)
  Receive Date: 20241212
  Receipt Date: 20241212
  Transmission Date: 20250115
  Serious: Yes (Other)
  Sender: BIOMARIN
  Company Number: US-BIOMARINAP-US-2024-162473

PATIENT

DRUGS (1)
  1. KUVAN [Suspect]
     Active Substance: SAPROPTERIN DIHYDROCHLORIDE
     Indication: Foetal exposure during pregnancy
     Dosage: 2 MILLIGRAM, QD
     Route: 064
     Dates: start: 20210503

REACTIONS (1)
  - Foetal growth restriction [Unknown]
